FAERS Safety Report 4283946-7 (Version None)
Quarter: 2004Q1

REPORT INFORMATION
  Report Type: 
  Country: None (occurrence: None)
  Receive Date: 20040115
  Receipt Date: 20030110
  Transmission Date: 20041129
  Serious: Yes (Death)
  Sender: FDA-Public Use
  Company Number: NSADSS2003001485

PATIENT
  Sex: Female

DRUGS (1)
  1. DOXIL [Suspect]
     Indication: BREAST CANCER FEMALE
     Dosage: 95 MG INTRAVENOUS DRIP
     Route: 042
     Dates: start: 20001101, end: 20010404

REACTIONS (1)
  - CONDITION AGGRAVATED [None]
